FAERS Safety Report 10035993 (Version 2)
Quarter: 2014Q1

REPORT INFORMATION
  Report Type: Spontaneous
  Country: PL (occurrence: PL)
  Receive Date: 20140325
  Receipt Date: 20140325
  Transmission Date: 20141002
  Serious: Yes (Life-Threatening)
  Sender: FDA-Public Use
  Company Number: PL-WATSON-2013-25159

PATIENT
  Age: 79 Year
  Sex: Male
  Weight: 79 kg

DRUGS (2)
  1. CARBOPLATIN (UNKNOWN) [Suspect]
     Indication: LUNG CARCINOMA CELL TYPE UNSPECIFIED RECURRENT
     Dosage: 243.03 MG, UNKNOWN
     Route: 042
     Dates: start: 20131108, end: 20131110
  2. VEPESID [Suspect]
     Indication: LUNG CARCINOMA CELL TYPE UNSPECIFIED RECURRENT
     Dosage: 148.51 MG, DAILY
     Route: 042
     Dates: start: 20131108, end: 20131110

REACTIONS (2)
  - Pancytopenia [Unknown]
  - Leukopenia [Unknown]
